FAERS Safety Report 5323887-7 (Version None)
Quarter: 2007Q2

REPORT INFORMATION
  Report Type: 
  Country: None (occurrence: None)
  Receive Date: 20070510
  Receipt Date: 20070510
  Transmission Date: 20071010
  Serious: No
  Sender: FDA-Public Use
  Company Number: None

PATIENT
  Age: 58 Year
  Sex: Female
  Weight: 68.0396 kg

DRUGS (1)
  1. WHITENING PRE-BRUSH RINSE NOT INDICATED LISTERINE [Suspect]
     Indication: TOOTH DISCOLOURATION
     Dosage: 3 TEASPONS TWICE A DAY DENTAL
     Route: 004
     Dates: start: 20070329, end: 20070330

REACTIONS (12)
  - DYSPHAGIA [None]
  - GINGIVAL DISORDER [None]
  - GINGIVAL PAIN [None]
  - GINGIVAL SWELLING [None]
  - GLOSSODYNIA [None]
  - NASOPHARYNGEAL DISORDER [None]
  - PHARMACEUTICAL PRODUCT COMPLAINT [None]
  - PHARYNGEAL OEDEMA [None]
  - PHARYNGOLARYNGEAL PAIN [None]
  - SWOLLEN TONGUE [None]
  - THERAPEUTIC PRODUCT CONTAMINATION [None]
  - TONGUE DISORDER [None]
